FAERS Safety Report 25854483 (Version 1)
Quarter: 2025Q3

REPORT INFORMATION
  Report Type: Spontaneous
  Country: IN (occurrence: IN)
  Receive Date: 20250927
  Receipt Date: 20250927
  Transmission Date: 20251020
  Serious: Yes (Other)
  Sender: MICRO LABS
  Company Number: IN-862174955-ML2025-04875

PATIENT
  Age: 60 Year
  Sex: Female

DRUGS (2)
  1. FLUOXETINE [Suspect]
     Active Substance: FLUOXETINE HYDROCHLORIDE
     Indication: Obsessive-compulsive disorder
  2. FLUOXETINE [Suspect]
     Active Substance: FLUOXETINE HYDROCHLORIDE
     Dosage: STARTED WITH TAB FLUOXETINE 20 MG BASED ON PAST RESPONSE THAT WAS GRADUALLY INCREASED TO 60 MG/DAY O

REACTIONS (1)
  - Hepatic cirrhosis [Recovering/Resolving]
